FAERS Safety Report 9851179 (Version 1)
Quarter: 2014Q1

REPORT INFORMATION
  Report Type: Spontaneous
  Country: US (occurrence: US)
  Receive Date: 20140128
  Receipt Date: 20140128
  Transmission Date: 20141002
  Serious: Yes (Other)
  Sender: FDA-Public Use
  Company Number: US-SANOFI-AVENTIS-2013SA092684

PATIENT
  Age: 69 Year
  Sex: Female

DRUGS (6)
  1. LASIX [Suspect]
     Route: 065
  2. LISINOPRIL [Suspect]
     Indication: CARDIOVASCULAR DISORDER
     Route: 065
  3. AMBRISENTAN [Suspect]
     Indication: PULMONARY HYPERTENSION
     Route: 048
     Dates: start: 20130523
  4. AMBRISENTAN [Suspect]
     Indication: SCLERODERMA
     Route: 048
     Dates: start: 20130523
  5. AMBRISENTAN [Suspect]
     Indication: PULMONARY HYPERTENSION
     Route: 048
  6. AMBRISENTAN [Suspect]
     Indication: SCLERODERMA
     Route: 048

REACTIONS (1)
  - Hypotension [Recovering/Resolving]
